FAERS Safety Report 17550364 (Version 1)
Quarter: 2020Q1

REPORT INFORMATION
  Report Type: Spontaneous
  Country: US (occurrence: US)
  Receive Date: 20200317
  Receipt Date: 20200317
  Transmission Date: 20200409
  Serious: No
  Sender: FDA-Public Use
  Company Number: US-PHARMING-PHAUS2020000088

PATIENT

DRUGS (1)
  1. RUCONEST [Suspect]
     Active Substance: HUMAN C1-ESTERASE INHIBITOR
     Indication: SYSTEMIC LUPUS ERYTHEMATOSUS
     Dosage: 4200 MILLIGRAM, AS NEEDED
     Route: 058
     Dates: start: 20200212

REACTIONS (3)
  - Hereditary angioedema [Unknown]
  - Product use in unapproved indication [Unknown]
  - Product use issue [Unknown]
